FAERS Safety Report 23612005 (Version 1)
Quarter: 2024Q1

REPORT INFORMATION
  Report Type: Spontaneous
  Country: US (occurrence: US)
  Receive Date: 20240308
  Receipt Date: 20240308
  Transmission Date: 20240410
  Serious: Yes (Hospitalization, Other)
  Sender: FDA-Public Use
  Company Number: US-BRISTOL-MYERS SQUIBB COMPANY-2024-035579

PATIENT
  Age: 78 Year
  Sex: Male

DRUGS (1)
  1. LENALIDOMIDE [Suspect]
     Active Substance: LENALIDOMIDE
     Indication: Plasma cell myeloma
     Dosage: 1 CAPSULE DAILY ON DAYS 1-14 OF EVERY 21-DAY CYCLE.
     Route: 048
     Dates: start: 20240223, end: 20240225

REACTIONS (8)
  - Renal failure [Unknown]
  - Jaundice [Unknown]
  - Tachycardia [Recovering/Resolving]
  - Hypotension [Recovering/Resolving]
  - Muscle spasms [Recovering/Resolving]
  - Pain [Not Recovered/Not Resolved]
  - Sepsis [Unknown]
  - Off label use [Unknown]

NARRATIVE: CASE EVENT DATE: 20240201
